FAERS Safety Report 8340028-2 (Version None)
Quarter: 2012Q2

REPORT INFORMATION
  Report Type: 
  Country: None (occurrence: None)
  Receive Date: 20120507
  Receipt Date: 20120501
  Transmission Date: 20120825
  Serious: Yes (Hospitalization)
  Sender: FDA-Public Use
  Company Number: US-PFIZER INC-2012072939

PATIENT
  Sex: Female
  Weight: 100.68 kg

DRUGS (7)
  1. GABAPENTIN [Suspect]
     Indication: NEUROPATHY PERIPHERAL
     Dosage: 600 MG, 3X/DAY (TWO 300MG CAPSULES)
     Route: 048
     Dates: start: 20070101, end: 20120301
  2. CLONAZEPAM [Concomitant]
     Dosage: 0.5 MG, UNK
  3. OXYCODONE [Concomitant]
     Dosage: 5 MG, UNK
  4. DIPHENHYDRAMINE [Concomitant]
     Dosage: UNK, AS NEEDED
  5. MORPHINE [Concomitant]
     Dosage: UNK
     Route: 037
  6. CYMBALTA [Concomitant]
     Dosage: 60 MG, UNK
  7. COLACE [Concomitant]
     Dosage: 100 MG, UNK

REACTIONS (3)
  - FALL [None]
  - SOMNAMBULISM [None]
  - OEDEMA PERIPHERAL [None]
